FAERS Safety Report 11109236 (Version 1)
Quarter: 2015Q2

REPORT INFORMATION
  Report Type: Spontaneous
  Country: US (occurrence: US)
  Receive Date: 20150513
  Receipt Date: 20150513
  Transmission Date: 20150821
  Serious: Yes (Other)
  Sender: FDA-Public Use
  Company Number: US-JNJFOC-20150503156

PATIENT
  Age: 60 Year
  Sex: Female

DRUGS (2)
  1. OLYSIO [Suspect]
     Active Substance: SIMEPREVIR
     Indication: HEPATITIS C
     Route: 048
     Dates: start: 201406, end: 201408
  2. SOVALDI [Suspect]
     Active Substance: SOFOSBUVIR
     Indication: HEPATITIS C
     Route: 065
     Dates: start: 201406, end: 201408

REACTIONS (3)
  - Drug ineffective [Unknown]
  - Hepatitis C [Unknown]
  - Cyclic vomiting syndrome [Unknown]

NARRATIVE: CASE EVENT DATE: 201411
